FAERS Safety Report 18616069 (Version 1)
Quarter: 2020Q4

REPORT INFORMATION
  Report Type: Spontaneous
  Country: RO (occurrence: RO)
  Receive Date: 20201214
  Receipt Date: 20201214
  Transmission Date: 20210114
  Serious: Yes (Other)
  Sender: FDA-Public Use
  Company Number: NVSC2020RO326870

PATIENT
  Age: 51 Year
  Sex: Male

DRUGS (17)
  1. VINCRISTINE [Suspect]
     Active Substance: VINCRISTINE
     Dosage: 8 R-CHOP CYCLES
     Route: 065
     Dates: start: 201807
  2. PREDNISOLONE. [Suspect]
     Active Substance: PREDNISOLONE
     Indication: B-CELL LYMPHOMA
     Dosage: 8 R-CHOP CYCLES
     Route: 065
     Dates: start: 201801
  3. OBINUTUZUMAB. [Suspect]
     Active Substance: OBINUTUZUMAB
     Dosage: 1000 MG, QD (D1, 8, 15)
     Route: 042
     Dates: start: 20191127
  4. DOXORUBICIN [Suspect]
     Active Substance: DOXORUBICIN
     Dosage: 8 R-CHOP CYCLES
     Route: 065
     Dates: start: 201807
  5. BENDAMUSTINE [Suspect]
     Active Substance: BENDAMUSTINE
     Indication: B-CELL LYMPHOMA
     Dosage: 90 MG/M2 (6 CYCLES, D1,2)
     Route: 065
     Dates: start: 201912, end: 202004
  6. RITUXIMAB. [Suspect]
     Active Substance: RITUXIMAB
     Dosage: R-DHAP 6 CYCLES
     Route: 065
  7. CYCLOPHOSPHAMIDE. [Suspect]
     Active Substance: CYCLOPHOSPHAMIDE
     Dosage: 8 R-CHOP CYCLES
     Route: 065
     Dates: start: 201807
  8. CISPLATIN. [Suspect]
     Active Substance: CISPLATIN
     Indication: B-CELL LYMPHOMA
     Dosage: 6 CYCLES R-DHAP
     Route: 065
  9. PREDNISOLONE. [Suspect]
     Active Substance: PREDNISOLONE
     Dosage: 8 R-CHOP CYCLES
     Route: 065
     Dates: start: 201807
  10. RITUXIMAB. [Suspect]
     Active Substance: RITUXIMAB
     Indication: B-CELL LYMPHOMA
     Dosage: 8 R-CHOP CYCLES
     Route: 065
     Dates: start: 201801, end: 201807
  11. RITUXIMAB. [Suspect]
     Active Substance: RITUXIMAB
     Dosage: MAINTENANCE IMMUNOTHERAPY
     Route: 058
  12. DEXAMETHASONE. [Suspect]
     Active Substance: DEXAMETHASONE
     Indication: B-CELL LYMPHOMA
     Dosage: 6 CYCLES R-DHAP
     Route: 065
  13. OBINUTUZUMAB. [Suspect]
     Active Substance: OBINUTUZUMAB
     Indication: B-CELL LYMPHOMA
     Dosage: 1000 MG, QD (6 CYCLES D1)
     Route: 042
     Dates: start: 201912, end: 202004
  14. BENDAMUSTINE [Suspect]
     Active Substance: BENDAMUSTINE
     Dosage: 90 MG/M2 ((TD 180MG),D1, 2)
     Route: 065
     Dates: start: 20191127
  15. CYCLOPHOSPHAMIDE. [Suspect]
     Active Substance: CYCLOPHOSPHAMIDE
     Indication: B-CELL LYMPHOMA
     Dosage: 8 R-CHOP CYCLES
     Route: 065
     Dates: start: 201801
  16. DOXORUBICIN [Suspect]
     Active Substance: DOXORUBICIN
     Indication: B-CELL LYMPHOMA
     Dosage: 8 R-CHOP CYCLES
     Route: 065
     Dates: start: 201801
  17. VINCRISTINE [Suspect]
     Active Substance: VINCRISTINE
     Indication: B-CELL LYMPHOMA
     Dosage: 8 R-CHOP CYCLES
     Route: 065
     Dates: start: 201801

REACTIONS (4)
  - Metabolic disorder [Unknown]
  - Neoplasm [Unknown]
  - Hyperglycaemia [Unknown]
  - Therapy partial responder [Unknown]

NARRATIVE: CASE EVENT DATE: 201801
